FAERS Safety Report 17280237 (Version 1)
Quarter: 2020Q1

REPORT INFORMATION
  Report Type: Spontaneous
  Country: FR (occurrence: FR)
  Receive Date: 20200117
  Receipt Date: 20200117
  Transmission Date: 20200409
  Serious: Yes (Hospitalization, Other)
  Sender: FDA-Public Use
  Company Number: FR-SA-2020SA010111

PATIENT
  Age: 43 Year
  Sex: Male

DRUGS (2)
  1. FABRAZYME [Suspect]
     Active Substance: AGALSIDASE BETA
     Dosage: 105 MG, QOW
     Route: 041
     Dates: start: 20191110
  2. FABRAZYME [Suspect]
     Active Substance: AGALSIDASE BETA
     Indication: FABRY^S DISEASE
     Dosage: UNK UNK, UNK
     Route: 065
     Dates: start: 2003, end: 2014

REACTIONS (4)
  - Hepatic cirrhosis [Unknown]
  - Depression [Unknown]
  - Ascites [Unknown]
  - Cardiac cirrhosis [Unknown]
